FAERS Safety Report 9100646 (Version 1)
Quarter: 2013Q1

REPORT INFORMATION
  Report Type: Spontaneous
  Country: CA (occurrence: CA)
  Receive Date: 20130215
  Receipt Date: 20130215
  Transmission Date: 20140127
  Serious: Yes (Other)
  Sender: FDA-Public Use
  Company Number: CA-PFIZER INC-2013057844

PATIENT
  Sex: Male

DRUGS (2)
  1. LYRICA [Suspect]
     Dosage: 600 MG, 1X/DAY
  2. LYRICA [Suspect]
     Dosage: 300 MG, 1X/DAY

REACTIONS (5)
  - Cerebrovascular accident [Unknown]
  - Hemiplegia [Unknown]
  - Dependence [Unknown]
  - Pain in extremity [Not Recovered/Not Resolved]
  - Pain in extremity [Not Recovered/Not Resolved]
